FAERS Safety Report 13855526 (Version 2)
Quarter: 2017Q4

REPORT INFORMATION
  Report Type: Spontaneous
  Country: US (occurrence: US)
  Receive Date: 20170810
  Receipt Date: 20171115
  Transmission Date: 20180320
  Serious: No
  Sender: FDA-Public Use
  Company Number: US-PFIZER INC-2017343366

PATIENT
  Age: 76 Year
  Sex: Female
  Weight: 55.34 kg

DRUGS (2)
  1. FISH OIL [Concomitant]
     Active Substance: FISH OIL
     Dosage: UNK
  2. PREMPRO [Suspect]
     Active Substance: ESTROGENS, CONJUGATED\MEDROXYPROGESTERONE ACETATE
     Indication: HOT FLUSH
     Dosage: [ESTROGENS CONJUGATED 0.45MG]/[MEDROXYPROGESTERONE ACETATE 1.5MG], 1 DF, 1X/DAY

REACTIONS (5)
  - Feeling abnormal [Unknown]
  - Hyperhidrosis [Unknown]
  - Malaise [Unknown]
  - Hot flush [Recovered/Resolved]
  - Intentional product misuse [Unknown]
